FAERS Safety Report 7798263-8 (Version None)
Quarter: 2011Q4

REPORT INFORMATION
  Report Type: 
  Country: None (occurrence: None)
  Receive Date: 20111005
  Receipt Date: 20110927
  Transmission Date: 20120403
  Serious: No
  Sender: FDA-Public Use
  Company Number: US-B.I. PHARMACEUTICALS,INC./RIDGEFIELD-2011-BP-22963BP

PATIENT
  Sex: Female

DRUGS (5)
  1. PRADAXA [Suspect]
     Indication: ATRIAL FIBRILLATION
     Dosage: 300 MG
     Route: 048
     Dates: start: 20110301
  2. HYDROCHLOROTHIAZIDE [Concomitant]
     Indication: HYPERTENSION
  3. BYSTOLIC [Suspect]
     Indication: HEART RATE
     Dosage: 2.5 MG
     Route: 048
     Dates: start: 20110701
  4. LOSARTAN POTASSIUM [Concomitant]
     Indication: HYPERTENSION
  5. LEVOXYL [Concomitant]
     Indication: HYPOTHYROIDISM

REACTIONS (2)
  - ABDOMINAL PAIN UPPER [None]
  - LETHARGY [None]
